FAERS Safety Report 5134436-0 (Version None)
Quarter: 2006Q4

REPORT INFORMATION
  Report Type: 
  Country: None (occurrence: None)
  Receive Date: 20061023
  Receipt Date: 20061023
  Transmission Date: 20070319
  Serious: Yes (Life-Threatening)
  Sender: FDA-Public Use
  Company Number: None

PATIENT
  Age: 69 Year
  Sex: Male
  Weight: 62.1428 kg

DRUGS (1)
  1. ADVAIR HFA [Suspect]
     Indication: RESPIRATORY DISORDER
     Dosage: 2 PUFFS EVERY 4-6 HRS PRN INHAL
     Route: 055
     Dates: start: 20060922, end: 20060925

REACTIONS (3)
  - GAIT DISTURBANCE [None]
  - ILL-DEFINED DISORDER [None]
  - MUSCLE SPASMS [None]
